FAERS Safety Report 5916740-9 (Version None)
Quarter: 2008Q4

REPORT INFORMATION
  Report Type: 
  Country: None (occurrence: None)
  Receive Date: 20081013
  Receipt Date: 20081001
  Transmission Date: 20090506
  Serious: Yes (Other)
  Sender: FDA-Public Use
  Company Number: US-PFIZER INC-2008036548

PATIENT
  Sex: Male

DRUGS (2)
  1. VIAGRA [Suspect]
     Indication: ERECTILE DYSFUNCTION
     Route: 048
     Dates: start: 20030101, end: 20060307
  2. ACETYLSALICYLIC ACID SRT [Concomitant]
     Dates: end: 20080720

REACTIONS (2)
  - OPTIC ISCHAEMIC NEUROPATHY [None]
  - OPTIC NERVE DISORDER [None]
